FAERS Safety Report 24610245 (Version 1)
Quarter: 2024Q4

REPORT INFORMATION
  Report Type: Spontaneous
  Country: GB (occurrence: GB)
  Receive Date: 20241112
  Receipt Date: 20241112
  Transmission Date: 20250115
  Serious: Yes (Other)
  Sender: ALEXION PHARMACEUTICALS
  Company Number: GB-MHRA-TPP55737845C10231549YC1730383098913

PATIENT
  Age: 58 Year
  Weight: 99 kg

DRUGS (16)
  1. DAPAGLIFLOZIN [Suspect]
     Active Substance: DAPAGLIFLOZIN
     Indication: Ill-defined disorder
  2. DAPAGLIFLOZIN [Suspect]
     Active Substance: DAPAGLIFLOZIN
  3. DAPAGLIFLOZIN [Suspect]
     Active Substance: DAPAGLIFLOZIN
  4. DAPAGLIFLOZIN [Suspect]
     Active Substance: DAPAGLIFLOZIN
  5. ATORVASTATIN [Concomitant]
     Active Substance: ATORVASTATIN
     Indication: Ill-defined disorder
     Dosage: TAKE ONE TABLET DAILY TO LOWER CHOLESTEROL
  6. ATORVASTATIN [Concomitant]
     Active Substance: ATORVASTATIN
     Dosage: TAKE ONE TABLET DAILY TO LOWER CHOLESTEROL
  7. BISOPROLOL [Concomitant]
     Active Substance: BISOPROLOL\BISOPROLOL FUMARATE
     Indication: Ill-defined disorder
     Dosage: TAKE ONE DAILY
  8. BISOPROLOL [Concomitant]
     Active Substance: BISOPROLOL\BISOPROLOL FUMARATE
     Dosage: TAKE ONE DAILY
  9. CLOPIDOGREL [Concomitant]
     Active Substance: CLOPIDOGREL BISULFATE
     Indication: Ill-defined disorder
     Dosage: TAKE ONE TABLET DAILY
  10. CLOPIDOGREL [Concomitant]
     Active Substance: CLOPIDOGREL BISULFATE
     Dosage: TAKE ONE TABLET DAILY
  11. EPLERENONE [Concomitant]
     Active Substance: EPLERENONE
     Indication: Ill-defined disorder
     Dosage: TAKE ONE DAILY  (TO REPEAT RENAL FUNCTION BLOOD...
  12. EPLERENONE [Concomitant]
     Active Substance: EPLERENONE
     Dosage: TAKE ONE DAILY  (TO REPEAT RENAL FUNCTION BLOOD...
  13. SACUBITRIL [Concomitant]
     Active Substance: SACUBITRIL
     Indication: Ill-defined disorder
     Dosage: 1 TO BE TAKEN TWICE DAILY
  14. SACUBITRIL [Concomitant]
     Active Substance: SACUBITRIL
     Dosage: 1 TO BE TAKEN TWICE DAILY
     Route: 065
  15. NITROGLYCERIN [Concomitant]
     Active Substance: NITROGLYCERIN
     Indication: Ill-defined disorder
     Dosage: SPRAY ONE PUFF UNDER THE TONGUE WHEN REQUIRED. ...
  16. NITROGLYCERIN [Concomitant]
     Active Substance: NITROGLYCERIN
     Dosage: SPRAY ONE PUFF UNDER THE TONGUE WHEN REQUIRED. ...

REACTIONS (3)
  - Dizziness [Unknown]
  - Fatigue [Unknown]
  - Hypoaesthesia [Recovered/Resolved]
